FAERS Safety Report 15946623 (Version 1)
Quarter: 2019Q1

REPORT INFORMATION
  Report Type: Report from Study
  Country: DE (occurrence: DE)
  Receive Date: 20190211
  Receipt Date: 20190211
  Transmission Date: 20190417
  Serious: Yes (Death, Hospitalization)
  Sender: FDA-Public Use
  Company Number: DE-PFIZER INC-2019057388

PATIENT
  Age: 75 Year
  Sex: Female
  Weight: 63 kg

DRUGS (22)
  1. BEVACIZUMAB. [Suspect]
     Active Substance: BEVACIZUMAB
     Dosage: 428 MG, EVERY 3 WEEKS
     Route: 042
     Dates: start: 20150317
  2. IRINOTECAN HCL [Suspect]
     Active Substance: IRINOTECAN HYDROCHLORIDE
     Indication: COLORECTAL CANCER METASTATIC
     Dosage: 300 MG, EVERY 3 WEEKS
     Route: 042
     Dates: start: 20150203, end: 20150407
  3. BEVACIZUMAB. [Suspect]
     Active Substance: BEVACIZUMAB
     Indication: COLORECTAL CANCER METASTATIC
     Dosage: 428 MG, EVERY 3 WEEKS
     Route: 042
     Dates: start: 20150203, end: 20150407
  4. OXYBUTYNIN. [Concomitant]
     Active Substance: OXYBUTYNIN CHLORIDE
     Dosage: 5 MG, 1X/DAY
     Route: 065
  5. DEXAMETHASON [DEXAMETHASONE] [Concomitant]
     Active Substance: DEXAMETHASONE
     Dosage: 8 MG, 1X/DAY
     Route: 065
  6. ONDANSETRON [Concomitant]
     Active Substance: ONDANSETRON
     Dosage: 16 MG, 1X/DAY
     Route: 065
  7. CAPECITABINE. [Suspect]
     Active Substance: CAPECITABINE
     Dosage: 3500 MG, CYCLIC (ON DAY 1-14 OF EVERY CYCLE WITH 7 DAY PAUSE)
     Route: 048
     Dates: start: 20140909, end: 20141216
  8. MACROGOL [Concomitant]
     Active Substance: POLYETHYLENE GLYCOLS
     Indication: CONSTIPATION
     Dosage: 1 DF, AS NEEDED
     Route: 048
  9. TARGIN [Concomitant]
     Active Substance: NALOXONE HYDROCHLORIDE\OXYCODONE HYDROCHLORIDE
     Dosage: 60 MG, 1X/DAY
     Route: 065
  10. BEVACIZUMAB. [Suspect]
     Active Substance: BEVACIZUMAB
     Dosage: 473 MG, EVERY 3 WEEKS
     Route: 042
     Dates: start: 20140909, end: 20150407
  11. PANTOPRAZOLE [Concomitant]
     Active Substance: PANTOPRAZOLE
     Dosage: 40 MG, 1X/DAY
     Route: 065
  12. CAPECITABINE. [Suspect]
     Active Substance: CAPECITABINE
     Dosage: DOSE (VALUE): 1650-3500
     Route: 048
     Dates: start: 20140909, end: 20150421
  13. L-THYROXIN [LEVOTHYROXINE] [Concomitant]
     Active Substance: LEVOTHYROXINE SODIUM
     Dosage: 100 UG, 1X/DAY
     Route: 065
  14. SIMVASTATIN. [Concomitant]
     Active Substance: SIMVASTATIN
     Dosage: 20 MG, 1X/DAY
     Route: 065
  15. RAMIPRIL. [Concomitant]
     Active Substance: RAMIPRIL
     Indication: HYPERTENSION
     Dosage: 10 MG, 1X/DAY
     Route: 048
  16. CAPECITABINE. [Suspect]
     Active Substance: CAPECITABINE
     Indication: COLORECTAL CANCER METASTATIC
     Dosage: 2500 MG, CYCLIC (ON DAY 1-14 OF EVERY CYCLE WITH 7 DAY PAUSE)
     Route: 048
     Dates: start: 20141223, end: 20150127
  17. IBEROGAST [Concomitant]
     Active Substance: HERBALS
     Dosage: 30 GTT, WITH MEALS
     Route: 048
  18. CAPECITABINE. [Suspect]
     Active Substance: CAPECITABINE
     Dosage: 1650 MG, CYCLIC (ON DAY 1-14 OF EVERY CYCLE WITH 7 DAY PAUSE)
     Route: 048
     Dates: start: 20150203, end: 20150421
  19. BEVACIZUMAB. [Suspect]
     Active Substance: BEVACIZUMAB
     Dosage: 473 MG, EVERY 3 WEEKS
     Route: 042
     Dates: start: 20141111
  20. AMLODIPINE [Concomitant]
     Active Substance: AMLODIPINE BESYLATE
     Dosage: 5 MG, 1X/DAY
     Route: 065
  21. METOCLOPRAMIDE. [Concomitant]
     Active Substance: METOCLOPRAMIDE
     Dosage: 30 MG, 1X/DAY
     Route: 065
  22. APLONA [Concomitant]
     Indication: DIARRHOEA
     Dosage: 1 DF, AS NEEDED
     Route: 048

REACTIONS (13)
  - General physical health deterioration [Fatal]
  - Nausea [Recovered/Resolved]
  - Asthenia [Recovered/Resolved]
  - Asthenia [Unknown]
  - Gastritis [Recovered/Resolved]
  - Palmar-plantar erythrodysaesthesia syndrome [Recovered/Resolved]
  - Diarrhoea [Recovered/Resolved]
  - Abdominal pain [Recovered/Resolved]
  - Subileus [Recovered/Resolved]
  - Nausea [Recovered/Resolved]
  - Pain [Recovered/Resolved]
  - Pulmonary embolism [Not Recovered/Not Resolved]
  - Vertigo [Recovered/Resolved]

NARRATIVE: CASE EVENT DATE: 20141124
